FAERS Safety Report 4688570-X (Version None)
Quarter: 2005Q2

REPORT INFORMATION
  Report Type: 
  Country: None (occurrence: None)
  Receive Date: 20050613
  Receipt Date: 20050601
  Transmission Date: 20051028
  Serious: Yes (Other)
  Sender: FDA-Public Use
  Company Number: JP-ABBOTT-05P-087-0302343-00

PATIENT
  Age: 66 Year
  Sex: Male
  Weight: 45.5 kg

DRUGS (12)
  1. CLARITHROMYCIN [Suspect]
     Indication: LIMB INJURY
     Route: 048
     Dates: start: 20040721
  2. CLARITHROMYCIN [Suspect]
     Indication: PHARYNGITIS
     Route: 048
     Dates: start: 20050301, end: 20050304
  3. MAGNESIUM OXIDE [Concomitant]
     Indication: CONSTIPATION
     Route: 048
     Dates: start: 20030203
  4. SEVELAMER HYDROCHLORIDE [Concomitant]
     Indication: BLOOD PHOSPHORUS INCREASED
     Route: 048
     Dates: start: 20040608
  5. PRECIPITATED CALCIUM CARBONATE [Concomitant]
     Indication: BLOOD PHOSPHORUS INCREASED
     Route: 048
     Dates: start: 20030105
  6. ASPIRIN DIALUMINATE [Concomitant]
     Indication: THROMBOTIC STROKE
     Route: 048
     Dates: start: 20040101
  7. RANITIDINE HYDROCHLORIDE [Concomitant]
     Indication: GASTRITIS
     Route: 048
     Dates: start: 20030101
  8. MEQUITAZINE [Concomitant]
     Indication: RASH
     Route: 048
     Dates: start: 20040101
  9. NIFEDIPINE [Concomitant]
     Indication: HYPERTENSION
     Route: 048
     Dates: start: 20040101
  10. SENNOSIDE [Concomitant]
     Indication: CONSTIPATION
     Route: 048
     Dates: start: 20040101
  11. SODIUM PICOSULFATE [Concomitant]
     Indication: CONSTIPATION
     Route: 048
     Dates: start: 20040101
  12. CEFACLOR [Concomitant]
     Indication: DRUG USE FOR UNKNOWN INDICATION
     Route: 048
     Dates: start: 20040916, end: 20040919

REACTIONS (8)
  - ARRHYTHMIA [None]
  - CHILLS [None]
  - HEADACHE [None]
  - PANCYTOPENIA [None]
  - PHARYNGOLARYNGEAL PAIN [None]
  - PYREXIA [None]
  - RHINORRHOEA [None]
  - UPPER RESPIRATORY TRACT INFLAMMATION [None]
